FAERS Safety Report 10586265 (Version 1)
Quarter: 2014Q4

REPORT INFORMATION
  Report Type: Spontaneous
  Country: AU (occurrence: AU)
  Receive Date: 20141117
  Receipt Date: 20141117
  Transmission Date: 20150529
  Serious: Yes (Life-Threatening, Hospitalization)
  Sender: FDA-Public Use
  Company Number: AU-ACCORD-027057

PATIENT
  Age: 51 Year
  Sex: Female

DRUGS (4)
  1. ALLOPURINOL/ALLOPURINOL SODIUM [Suspect]
     Active Substance: ALLOPURINOL SODIUM
     Indication: PRODUCT USED FOR UNKNOWN INDICATION
     Dosage: COMMENCED 3 WEEKS PRIOR
  2. PERINDOPRIL/PERINDOPRIL ERBUMINE [Suspect]
     Active Substance: PERINDOPRIL ERBUMINE
     Indication: PRODUCT USED FOR UNKNOWN INDICATION
  3. ERGOCALCIFEROL. [Concomitant]
     Active Substance: ERGOCALCIFEROL
  4. PANTOPRAZOLE [Concomitant]
     Active Substance: PANTOPRAZOLE SODIUM

REACTIONS (16)
  - Anuria [None]
  - Septic shock [None]
  - Pleural effusion [None]
  - Pneumonitis [Recovered/Resolved]
  - Haemodynamic instability [None]
  - Renal impairment [None]
  - Myocarditis [Recovered/Resolved]
  - Drug reaction with eosinophilia and systemic symptoms [Recovered/Resolved]
  - Dehydration [None]
  - Condition aggravated [None]
  - Anaemia [None]
  - Haemofiltration [None]
  - Cholestasis [None]
  - Hypoalbuminaemia [None]
  - Disseminated intravascular coagulation [Recovered/Resolved]
  - Renal tubular necrosis [Recovered/Resolved]
